FAERS Safety Report 9109432 (Version 1)
Quarter: 2013Q1

REPORT INFORMATION
  Report Type: Report from Study
  Country: US (occurrence: US)
  Receive Date: 20130222
  Receipt Date: 20130222
  Transmission Date: 20140127
  Serious: Yes (Other)
  Sender: FDA-Public Use
  Company Number: US-BIOMARINAP-US-2013-100266

PATIENT
  Age: 18 Year
  Sex: Male
  Weight: 92.4 kg

DRUGS (2)
  1. KUVAN [Suspect]
     Indication: AUTONOMIC NERVOUS SYSTEM IMBALANCE
     Dosage: 2900 MG, QD
     Route: 048
     Dates: start: 20130107, end: 201301
  2. SINEMET [Concomitant]
     Indication: PRODUCT USED FOR UNKNOWN INDICATION
     Dosage: 25 MG, BID
     Route: 048

REACTIONS (1)
  - Suicidal ideation [Recovering/Resolving]
